FAERS Safety Report 8244656-4 (Version None)
Quarter: 2012Q1

REPORT INFORMATION
  Report Type: 
  Country: None (occurrence: None)
  Receive Date: 20120329
  Receipt Date: 20111208
  Transmission Date: 20120608
  Serious: No
  Sender: FDA-Public Use
  Company Number: US-MYLANLABS-2011S1025388

PATIENT
  Age: 39 Year
  Sex: Female
  Weight: 90.72 kg

DRUGS (2)
  1. FENTANYL-100 [Suspect]
     Indication: BACK PAIN
     Dosage: CHANGES Q. 72 HOURS.
     Route: 062
     Dates: start: 20111101
  2. FENTANYL-100 [Suspect]
     Indication: FIBROMYALGIA
     Dosage: CHANGES Q. 72 HOURS.
     Route: 062
     Dates: start: 20111101

REACTIONS (2)
  - APPLICATION SITE PAIN [None]
  - APPLICATION SITE IRRITATION [None]
